FAERS Safety Report 19133484 (Version 1)
Quarter: 2021Q2

REPORT INFORMATION
  Report Type: Spontaneous
  Country: US (occurrence: US)
  Receive Date: 20210413
  Receipt Date: 20210413
  Transmission Date: 20210717
  Serious: Yes (Hospitalization)
  Sender: FDA-Public Use
  Company Number: None

PATIENT
  Sex: Female

DRUGS (22)
  1. DIPHEN/ATROP [Concomitant]
     Active Substance: ATROPINE SULFATE\DIPHENOXYLATE
  2. SOLIFENACIN [Concomitant]
     Active Substance: SOLIFENACIN
  3. AMTRIPTYLIN [Concomitant]
  4. NIFEDIPINE. [Concomitant]
     Active Substance: NIFEDIPINE
  5. PRAVASTATIN. [Concomitant]
     Active Substance: PRAVASTATIN
  6. RESTASIS EMU [Concomitant]
  7. TRIM/HCTZ [Concomitant]
  8. PRAMIPEXOLE. [Concomitant]
     Active Substance: PRAMIPEXOLE
  9. ESZOPICLONE. [Concomitant]
     Active Substance: ESZOPICLONE
  10. PANTOPRAZOLE [Concomitant]
     Active Substance: PANTOPRAZOLE
  11. METOPROL SUC ER [Concomitant]
     Active Substance: METOPROLOL SUCCINATE
  12. CEPHALEXIN. [Concomitant]
     Active Substance: CEPHALEXIN
  13. LOTEMAX [Concomitant]
     Active Substance: LOTEPREDNOL ETABONATE
  14. PAZEO [Concomitant]
     Active Substance: OLOPATADINE HYDROCHLORIDE
  15. HUMIRA [Suspect]
     Active Substance: ADALIMUMAB
     Indication: RHEUMATOID ARTHRITIS
     Route: 058
     Dates: start: 20180208
  16. GABAPENTIN. [Concomitant]
     Active Substance: GABAPENTIN
  17. LEFLUOMIDE [Concomitant]
  18. LEVOTHYROXIN [Concomitant]
     Active Substance: LEVOTHYROXINE
  19. CEFUROXIME. [Concomitant]
     Active Substance: CEFUROXIME
  20. CLOPIDOGREL [Concomitant]
     Active Substance: CLOPIDOGREL BISULFATE
  21. ESCITALOPRAM [Concomitant]
     Active Substance: ESCITALOPRAM OXALATE
  22. POT CHLORIDE ER [Concomitant]

REACTIONS (3)
  - Hospitalisation [None]
  - Therapy interrupted [None]
  - Anticoagulant therapy [None]
